FAERS Safety Report 6280881-X (Version None)
Quarter: 2009Q3

REPORT INFORMATION
  Report Type: 
  Country: None (occurrence: None)
  Receive Date: 20090724
  Receipt Date: 20090306
  Transmission Date: 20100115
  Serious: Yes (Hospitalization)
  Sender: FDA-Public Use
  Company Number: A0772861A

PATIENT
  Age: 83 Year
  Sex: Male

DRUGS (3)
  1. AVANDIA [Suspect]
     Indication: DIABETES MELLITUS
     Route: 048
     Dates: start: 19990819, end: 20020501
  2. ZYRTEC [Concomitant]
  3. COZAAR [Concomitant]

REACTIONS (1)
  - CARDIAC FAILURE CONGESTIVE [None]
